FAERS Safety Report 5840794-1 (Version None)
Quarter: 2008Q3

REPORT INFORMATION
  Report Type: 
  Country: None (occurrence: None)
  Receive Date: 20080811
  Receipt Date: 20080730
  Transmission Date: 20090109
  Serious: Yes (Hospitalization)
  Sender: FDA-Public Use
  Company Number: DK-PFIZER INC-2008048213

PATIENT
  Sex: Male
  Weight: 68.1 kg

DRUGS (10)
  1. ARTHROTEC [Suspect]
     Indication: ARTHRALGIA
     Route: 048
     Dates: start: 20080501, end: 20080502
  2. ALLOPURINOL [Suspect]
     Indication: GOUT
     Route: 048
     Dates: start: 20060101, end: 20080403
  3. ALLOPURINOL [Suspect]
     Route: 048
     Dates: start: 20080404, end: 20080511
  4. FURIX [Concomitant]
     Route: 048
  5. NEXIUM [Concomitant]
     Route: 048
  6. SELO-ZOK [Concomitant]
     Route: 048
  7. ACETYLSALICYLIC ACID SRT [Concomitant]
     Route: 048
  8. ACETAMINOPHEN [Concomitant]
     Route: 048
  9. FELDEN [Concomitant]
     Route: 048
  10. OXYNORM [Concomitant]
     Route: 048

REACTIONS (1)
  - VASCULITIS [None]
